FAERS Safety Report 15198581 (Version 2)
Quarter: 2018Q3

REPORT INFORMATION
  Report Type: Report from Study
  Country: JP (occurrence: JP)
  Receive Date: 20180725
  Receipt Date: 20180914
  Transmission Date: 20181010
  Serious: Yes (Death)
  Sender: FDA-Public Use
  Company Number: JP-BEH-2018093104

PATIENT
  Age: 78 Year
  Sex: Female
  Weight: 55 kg

DRUGS (11)
  1. VASOLAN                            /00014302/ [Concomitant]
     Active Substance: VERAPAMIL HYDROCHLORIDE
     Route: 048
  2. BERIPLEX P/N [Suspect]
     Active Substance: COAGULATION FACTOR IX HUMAN\COAGULATION FACTOR VII HUMAN\COAGULATION FACTOR X HUMAN\PROTEIN C\PROTEIN S HUMAN\PROTHROMBIN
     Indication: HAEMORRHAGE
     Dosage: 1375 IU, UNK
     Route: 042
     Dates: start: 20180612
  3. KAYTWO N [Concomitant]
     Active Substance: MENATETRENONE
     Indication: PROCOAGULANT THERAPY
     Dosage: 20 MG, UNK
     Route: 065
     Dates: start: 20180612, end: 20180612
  4. NEXIUM [Concomitant]
     Active Substance: ESOMEPRAZOLE MAGNESIUM
     Route: 048
  5. BAKUMONDOTO [Concomitant]
     Active Substance: HERBALS
     Route: 048
  6. FUROSEMIDE. [Concomitant]
     Active Substance: FUROSEMIDE
     Route: 048
  7. ALLOPURINOL. [Concomitant]
     Active Substance: ALLOPURINOL
     Route: 048
  8. ZETIA [Concomitant]
     Active Substance: EZETIMIBE
     Route: 048
  9. WARFARIN [Concomitant]
     Active Substance: WARFARIN
     Indication: ATRIAL FIBRILLATION
     Dosage: 1.75 MG, UNK
     Route: 048
     Dates: end: 20180612
  10. ETIZOLAM [Concomitant]
     Active Substance: ETIZOLAM
     Route: 048
  11. PRANLUKAST [Concomitant]
     Active Substance: PRANLUKAST
     Route: 048

REACTIONS (1)
  - Thalamus haemorrhage [Fatal]
